FAERS Safety Report 18997025 (Version 1)
Quarter: 2021Q1

REPORT INFORMATION
  Report Type: Spontaneous
  Country: US (occurrence: US)
  Receive Date: 20210311
  Receipt Date: 20210311
  Transmission Date: 20210420
  Serious: No
  Sender: FDA-Public Use
  Company Number: None

PATIENT
  Age: 31 Year
  Sex: Female

DRUGS (2)
  1. HYDROMORPHONE [Suspect]
     Active Substance: HYDROMORPHONE
     Indication: PROCEDURAL PAIN
     Dosage: ?          OTHER FREQUENCY:X 1 DOSE;?
     Route: 042
     Dates: start: 20210310, end: 20210310
  2. FENTANYL. [Suspect]
     Active Substance: FENTANYL
     Indication: PROCEDURAL PAIN
     Dosage: ?          OTHER FREQUENCY:Q 5 MINUTES X 2;?
     Route: 042
     Dates: start: 20210310, end: 20210310

REACTIONS (1)
  - Lip swelling [None]

NARRATIVE: CASE EVENT DATE: 20210310
